FAERS Safety Report 9804068 (Version 1)
Quarter: 2014Q1

REPORT INFORMATION
  Report Type: Spontaneous
  Country: GB (occurrence: None)
  Receive Date: 20140103
  Receipt Date: 20140103
  Transmission Date: 20141002
  Serious: Yes (Hospitalization)
  Sender: FDA-Public Use
  Company Number: 2100150

PATIENT
  Age: 85 Year
  Sex: Female

DRUGS (1)
  1. METHOTREXATE [Suspect]
     Indication: ANKYLOSING SPONDYLITIS
     Dosage: 20 MG MILLIGRAM(S), UNKNOWN, SUBCUTANEOUS
     Route: 058
     Dates: start: 20100218

REACTIONS (3)
  - Headache [None]
  - Pneumonia [None]
  - Muscular weakness [None]
